FAERS Safety Report 21296390 (Version 1)
Quarter: 2022Q3

REPORT INFORMATION
  Report Type: Report from Study
  Country: AU (occurrence: AU)
  Receive Date: 20220906
  Receipt Date: 20220906
  Transmission Date: 20221026
  Serious: Yes (Hospitalization, Other)
  Sender: FDA-Public Use
  Company Number: AU-JNJFOC-20171120163

PATIENT
  Age: 64 Year
  Sex: Female
  Weight: 73.5 kg

DRUGS (21)
  1. BORTEZOMIB [Suspect]
     Active Substance: BORTEZOMIB
     Indication: Plasma cell myeloma
     Dosage: 1.3 MILLIGRAM
     Route: 058
     Dates: start: 20170511
  2. DEXAMETHASONE [Suspect]
     Active Substance: DEXAMETHASONE
     Indication: Plasma cell myeloma
     Dosage: 20 MG, QD
     Route: 048
     Dates: start: 20170511
  3. VENETOCLAX [Suspect]
     Active Substance: VENETOCLAX
     Indication: Plasma cell myeloma
     Dosage: 800 MILLIGRAM, QD
     Route: 048
     Dates: start: 20170511, end: 20170703
  4. VENETOCLAX [Suspect]
     Active Substance: VENETOCLAX
     Dosage: 800 MILLIGRAM, QD
     Route: 048
     Dates: start: 20170610, end: 20170802
  5. VENETOCLAX [Suspect]
     Active Substance: VENETOCLAX
     Dosage: 800 MILLIGRAM, QD
     Route: 048
     Dates: start: 20170810
  6. ACETAMINOPHEN [Concomitant]
     Active Substance: ACETAMINOPHEN
     Indication: Small intestinal obstruction
     Dosage: 4 G, QD
     Route: 042
     Dates: start: 20170603, end: 20170607
  7. ACETAMINOPHEN [Concomitant]
     Active Substance: ACETAMINOPHEN
     Indication: Bone pain
     Dosage: 1 GRAM
     Route: 048
     Dates: start: 201703
  8. ACETAMINOPHEN [Concomitant]
     Active Substance: ACETAMINOPHEN
     Dosage: 4 G, QD
     Route: 048
     Dates: start: 20170606, end: 20170609
  9. TRAMADOL [Concomitant]
     Active Substance: TRAMADOL
     Indication: Bone pain
     Dosage: 50 MILLIGRAM
     Route: 065
     Dates: start: 201703
  10. ESTRADIOL [Concomitant]
     Active Substance: ESTRADIOL
     Indication: Hormone replacement therapy
     Dosage: UNK, QD
     Route: 067
     Dates: start: 2010
  11. VALACYCLOVIR HYDROCHLORIDE [Concomitant]
     Active Substance: VALACYCLOVIR HYDROCHLORIDE
     Indication: Prophylaxis
     Dosage: 500 MG, QD
     Route: 065
     Dates: start: 20170510
  12. LYRICA [Concomitant]
     Active Substance: PREGABALIN
     Indication: Neuralgia
     Dosage: 50 MG, QD
     Route: 065
     Dates: start: 201703
  13. ENDEP [Concomitant]
     Active Substance: AMITRIPTYLINE HYDROCHLORIDE
     Indication: Irritable bowel syndrome
     Dosage: 10 MG, QD
     Route: 048
     Dates: start: 1997
  14. PANTOPRAZOLE [Concomitant]
     Active Substance: PANTOPRAZOLE
     Indication: Gastrooesophageal reflux disease
     Dosage: 80 MG, BID
     Route: 042
     Dates: start: 20170603, end: 20170606
  15. PANTOPRAZOLE [Concomitant]
     Active Substance: PANTOPRAZOLE
     Dosage: 40 MILLIGRAM
     Route: 048
     Dates: start: 20170606
  16. OXYCODONE [Concomitant]
     Active Substance: OXYCODONE
     Indication: Bone pain
     Dosage: 5 MILLIGRAM
     Route: 048
     Dates: start: 20170717
  17. DEXTRAN [Concomitant]
     Active Substance: DEXTRAN
     Indication: Blepharitis
     Dosage: UNK
     Route: 047
     Dates: start: 20170713
  18. MOVICOLON [Concomitant]
     Active Substance: POLYETHYLENE GLYCOL 3350\POTASSIUM CHLORIDE\SODIUM BICARBONATE\SODIUM CHLORIDE
     Indication: Constipation
     Dosage: UNK
     Route: 048
     Dates: start: 2007
  19. Cartia [Concomitant]
     Indication: Thrombosis prophylaxis
     Dosage: 100 MG, QD
     Route: 065
     Dates: start: 2009
  20. ZOLEDRONIC ACID [Concomitant]
     Active Substance: ZOLEDRONIC ACID
     Indication: Prophylaxis
     Dosage: 4 MG, Q4WEEKS
     Route: 065
     Dates: start: 20170515
  21. DOCUSATE SODIUM\SENNOSIDES A AND B [Concomitant]
     Active Substance: DOCUSATE SODIUM\SENNOSIDES A AND B
     Indication: Constipation
     Dosage: UNK
     Route: 048

REACTIONS (1)
  - Atypical pneumonia [Recovered/Resolved]

NARRATIVE: CASE EVENT DATE: 20171005
